FAERS Safety Report 6294790-3 (Version None)
Quarter: 2009Q3

REPORT INFORMATION
  Report Type: 
  Country: None (occurrence: None)
  Receive Date: 20090731
  Receipt Date: 20090731
  Transmission Date: 20100115
  Serious: No
  Sender: FDA-Public Use
  Company Number: None

PATIENT
  Age: 29 Year
  Sex: Female
  Weight: 70.3075 kg

DRUGS (2)
  1. ZICAM - COLD REMEDY SWABS MATRIXX INITIATIVES, INC. [Suspect]
     Indication: NASOPHARYNGITIS
     Dosage: ONE SWAB WHENEVER NECESSARY NASAL
     Route: 045
     Dates: start: 20040101, end: 20050101
  2. ZICAM - COLD REMEDY SWABS MATRIXX INITIATIVES, INC. [Suspect]
     Indication: PROPHYLAXIS
     Dosage: ONE SWAB WHENEVER NECESSARY NASAL
     Route: 045
     Dates: start: 20040101, end: 20050101

REACTIONS (3)
  - DYSGEUSIA [None]
  - NASAL CONGESTION [None]
  - PAROSMIA [None]
